FAERS Safety Report 8005719-1 (Version None)
Quarter: 2011Q4

REPORT INFORMATION
  Report Type: 
  Country: None (occurrence: None)
  Receive Date: 20111223
  Receipt Date: 20111220
  Transmission Date: 20120403
  Serious: Yes (Life-Threatening, Hospitalization, Disabling)
  Sender: FDA-Public Use
  Company Number: PHHY2011GB110621

PATIENT
  Age: 18 Year
  Sex: Male

DRUGS (2)
  1. CITALOPRAM HYDROBROMIDE [Suspect]
     Indication: MENTAL DISORDER
     Dosage: 20 MG, QD
     Route: 048
     Dates: start: 20111028, end: 20111204
  2. TEMAZEPAM [Concomitant]
     Dosage: 10 MG, QD

REACTIONS (5)
  - SUICIDAL IDEATION [None]
  - RIB FRACTURE [None]
  - BRAIN INJURY [None]
  - SUICIDE ATTEMPT [None]
  - PNEUMOTHORAX [None]
